FAERS Safety Report 5193638-8 (Version None)
Quarter: 2006Q4

REPORT INFORMATION
  Report Type: 
  Country: None (occurrence: None)
  Receive Date: 20061221
  Receipt Date: 20061205
  Transmission Date: 20070319
  Serious: Yes (Hospitalization)
  Sender: FDA-Public Use
  Company Number: S06-ISR-05260-01

PATIENT
  Age: 48 Year
  Sex: Female

DRUGS (3)
  1. ESCITALOPRAM (DOUBLE-BLIND) (ESCITALOPRAM) [Suspect]
     Indication: ACUTE STRESS DISORDER
     Dosage: 10 MG QD
  2. CINNARIZINE [Concomitant]
  3. PROPOXYPHENE (PROPOXYPHENE) [Concomitant]

REACTIONS (1)
  - MENOMETRORRHAGIA [None]
